FAERS Safety Report 11828171 (Version 4)
Quarter: 2021Q1

REPORT INFORMATION
  Report Type: Report from Study
  Country: US (occurrence: US)
  Receive Date: 20151211
  Receipt Date: 20210223
  Transmission Date: 20210419
  Serious: Yes (Hospitalization)
  Sender: FDA-Public Use
  Company Number: US-TEVA-617021USA

PATIENT
  Age: 64 Year
  Sex: Female
  Weight: 78.27 kg

DRUGS (25)
  1. DOXORUBICIN [Suspect]
     Active Substance: DOXORUBICIN
     Dosage: CHEMOTHERAPY SEGMENT 2
     Route: 042
     Dates: start: 20151112
  2. CARBOPLATIN. [Suspect]
     Active Substance: CARBOPLATIN
     Dosage: DAY 1 OF FOUR 21?DAY CYCLES, CHEMOTHERAPY SEGMENT 1
     Route: 042
     Dates: start: 20150723, end: 20151001
  3. PACLITAXEL. [Suspect]
     Active Substance: PACLITAXEL
     Indication: TRIPLE NEGATIVE BREAST CANCER
     Dosage: DAY 1 OF 12 WEEKLY CYCLES, CHEMOTHERAPY SEGMENT 1
     Route: 042
     Dates: start: 20150723, end: 20151022
  4. FAMOTIDINE. [Concomitant]
     Active Substance: FAMOTIDINE
     Indication: GASTROOESOPHAGEAL REFLUX DISEASE
     Dosage: 10 MILLIGRAM DAILY;
     Route: 048
     Dates: start: 20150730
  5. DEXAMETHASONE. [Concomitant]
     Active Substance: DEXAMETHASONE
     Indication: PROPHYLAXIS
     Dosage: PRIOR TO CHEMOTHERAPY
     Route: 042
     Dates: start: 20150723
  6. LORAZEPAM. [Concomitant]
     Active Substance: LORAZEPAM
     Indication: NAUSEA
     Dosage: AS REQUIRED
     Route: 048
     Dates: start: 20150724
  7. ONDASETRON [Concomitant]
     Active Substance: ONDANSETRON
     Indication: NAUSEA
     Dosage: AS REQUIRED
     Route: 048
     Dates: start: 20150724
  8. VENLAFAXINE HCL [Concomitant]
     Active Substance: VENLAFAXINE HYDROCHLORIDE
     Indication: HOT FLUSH
     Dosage: 75 MILLIGRAM DAILY;
     Route: 048
     Dates: start: 2006
  9. LISINOPRIL. [Concomitant]
     Active Substance: LISINOPRIL
     Indication: HYPERTENSION
     Dosage: 20 MILLIGRAM DAILY;
     Route: 048
     Dates: start: 1985
  10. MIRALAX [Concomitant]
     Active Substance: POLYETHYLENE GLYCOL 3350
     Indication: CONSTIPATION
     Dosage: AS REQUIRED
     Route: 048
     Dates: start: 20150730
  11. ABT?888 [Suspect]
     Active Substance: VELIPARIB
     Dosage: 100 MG/M2 DAILY; CHEMOTHERAPY SEGMENT 1
     Route: 048
     Dates: start: 20150723, end: 20151028
  12. CYCLOPHOSPHAMIDE. [Suspect]
     Active Substance: CYCLOPHOSPHAMIDE
     Dosage: CHEMOTHERAPY SEGMENT 2
     Route: 042
     Dates: start: 20151112
  13. DIPHENHYDRAMINE. [Concomitant]
     Active Substance: DIPHENHYDRAMINE
     Indication: PROPHYLAXIS
     Dosage: PRIOR TO CHEMOTHERAPY
     Route: 042
     Dates: start: 20150723, end: 20151022
  14. DOXORUBICIN [Suspect]
     Active Substance: DOXORUBICIN
     Indication: TRIPLE NEGATIVE BREAST CANCER
     Dosage: CHEMOTHERAPY SEGMENT 2
     Route: 042
     Dates: start: 20151029, end: 20151029
  15. PALONOSETRON. [Concomitant]
     Active Substance: PALONOSETRON HYDROCHLORIDE
     Indication: NAUSEA
     Dosage: PRIOR TO CHEMOTHERAPY
     Route: 042
     Dates: start: 20150813
  16. CLARITIN [Concomitant]
     Active Substance: LORATADINE
     Indication: PAIN PROPHYLAXIS
     Dosage: 10 MILLIGRAM DAILY;
     Route: 048
     Dates: start: 20151030, end: 20151122
  17. PEGFILGRASTIM OBI [Concomitant]
     Indication: PROPHYLAXIS
     Dosage: AFTER AC INFUSION (6 MG)
     Route: 058
     Dates: start: 20151029
  18. DECADRON [Concomitant]
     Active Substance: DEXAMETHASONE
     Indication: ANTIEMETIC SUPPORTIVE CARE
     Dosage: PRIOR TO AC INFUSION (12 MG)
     Route: 042
     Dates: start: 20151029
  19. CYCLOPHOSPHAMIDE. [Suspect]
     Active Substance: CYCLOPHOSPHAMIDE
     Indication: TRIPLE NEGATIVE BREAST CANCER
     Dosage: CHEMOTHERAPY SEGMENT 2
     Route: 042
     Dates: start: 20151029, end: 20151029
  20. LORAZEPAM. [Concomitant]
     Active Substance: LORAZEPAM
     Indication: ANXIETY
  21. DIPHENHYDRAMINE. [Concomitant]
     Active Substance: DIPHENHYDRAMINE
     Indication: RASH
     Dosage: AS REQUIRED
     Route: 048
     Dates: start: 20150807, end: 20150813
  22. FAMOTIDINE. [Concomitant]
     Active Substance: FAMOTIDINE
     Indication: PROPHYLAXIS
     Dosage: PRIOR TO CHEMOTHERAPY
     Route: 042
     Dates: start: 20150723, end: 20151022
  23. DEXAMETHASONE. [Concomitant]
     Active Substance: DEXAMETHASONE
     Indication: PROPHYLAXIS OF NAUSEA AND VOMITING
     Dosage: 8 MILLIGRAM DAILY; DAYS 2?4 OF EACH AC CYCLE
     Route: 048
     Dates: start: 20151030
  24. EMEND [Concomitant]
     Active Substance: APREPITANT
     Indication: ANTIEMETIC SUPPORTIVE CARE
     Route: 042
     Dates: start: 20151029
  25. COLACE [Concomitant]
     Active Substance: DOCUSATE SODIUM
     Indication: CONSTIPATION
     Dosage: 100 MG, AS REQUIRED
     Route: 048
     Dates: start: 20150725, end: 20151124

REACTIONS (1)
  - Febrile neutropenia [Recovered/Resolved]

NARRATIVE: CASE EVENT DATE: 20151119
